FAERS Safety Report 5541905-8 (Version None)
Quarter: 2007Q4

REPORT INFORMATION
  Report Type: 
  Country: None (occurrence: None)
  Receive Date: 20071205
  Receipt Date: 20071121
  Transmission Date: 20080405
  Serious: Yes (Life-Threatening, Hospitalization)
  Sender: FDA-Public Use
  Company Number: 2007-05273

PATIENT
  Age: 43 Year
  Sex: Male

DRUGS (5)
  1. ANDRODERM [Suspect]
     Indication: DRUG USE FOR UNKNOWN INDICATION
  2. NANDROLONE DECANOATE [Suspect]
     Indication: DRUG USE FOR UNKNOWN INDICATION
  3. STANOZOLOL [Suspect]
     Indication: DRUG USE FOR UNKNOWN INDICATION
  4. PRIMABOLIN() [Suspect]
     Indication: DRUG USE FOR UNKNOWN INDICATION
  5. WARFARIN SODIUM [Concomitant]

REACTIONS (7)
  - ABDOMINAL PAIN UPPER [None]
  - CIRCULATORY COLLAPSE [None]
  - HAEMORRHAGE [None]
  - HEPATIC ADENOMA [None]
  - HEPATIC RUPTURE [None]
  - RENAL FAILURE ACUTE [None]
  - SEPSIS [None]
